FAERS Safety Report 5776999-8 (Version None)
Quarter: 2008Q2

REPORT INFORMATION
  Report Type: 
  Country: None (occurrence: None)
  Receive Date: 20080618
  Receipt Date: 20080418
  Transmission Date: 20081010
  Serious: No
  Sender: FDA-Public Use
  Company Number: US-ASTRAZENECA-2008UW07947

PATIENT
  Age: 70 Year
  Sex: Female
  Weight: 71.7 kg

DRUGS (6)
  1. SYMBICORT [Suspect]
     Indication: ASTHMA
     Route: 055
  2. PREDNISONE TAB [Concomitant]
  3. ASPIRIN [Concomitant]
  4. PREMARIN [Concomitant]
  5. NORVASC [Concomitant]
  6. MICARDIS [Concomitant]

REACTIONS (5)
  - CONTUSION [None]
  - MUSCULAR WEAKNESS [None]
  - NAUSEA [None]
  - TREMOR [None]
  - VISUAL DISTURBANCE [None]
